FAERS Safety Report 22975897 (Version 2)
Quarter: 2023Q4

REPORT INFORMATION
  Report Type: Report from Study
  Country: EG (occurrence: EG)
  Receive Date: 20230925
  Receipt Date: 20231005
  Transmission Date: 20240110
  Serious: Yes (Other)
  Sender: FDA-Public Use
  Company Number: EG-002147023-NVSC2023EG204736

PATIENT
  Sex: Female

DRUGS (1)
  1. COSENTYX [Suspect]
     Active Substance: SECUKINUMAB
     Indication: Ankylosing spondylitis
     Dosage: 1 PEN WEEKLY FOR 4 WEEKS
     Route: 058
     Dates: start: 2022

REACTIONS (4)
  - Systemic lupus erythematosus [Unknown]
  - Immune system disorder [Unknown]
  - Gastrointestinal disorder [Unknown]
  - Drug ineffective [Unknown]
